FAERS Safety Report 7477024-3 (Version None)
Quarter: 2011Q2

REPORT INFORMATION
  Report Type: 
  Country: None (occurrence: None)
  Receive Date: 20110512
  Receipt Date: 20110505
  Transmission Date: 20111010
  Serious: Yes (Hospitalization)
  Sender: FDA-Public Use
  Company Number: US-GILEAD-2010-0034128

PATIENT
  Age: 80 Year
  Sex: Female

DRUGS (6)
  1. LETAIRIS [Suspect]
     Indication: DIASTOLIC DYSFUNCTION
  2. LETAIRIS [Suspect]
     Indication: CARDIAC VALVE DISEASE
  3. LETAIRIS [Suspect]
     Indication: LUNG DISORDER
  4. LETAIRIS [Suspect]
     Indication: SLEEP APNOEA SYNDROME
  5. LETAIRIS [Suspect]
     Indication: PULMONARY HYPERTENSION
     Route: 048
     Dates: start: 20090720
  6. COUMADIN [Suspect]

REACTIONS (3)
  - THROMBOSIS [None]
  - DYSPNOEA [None]
  - PNEUMONIA [None]
